FAERS Safety Report 18839711 (Version 1)
Quarter: 2021Q1

REPORT INFORMATION
  Report Type: Report from Study
  Country: US (occurrence: US)
  Receive Date: 20210204
  Receipt Date: 20210204
  Transmission Date: 20210419
  Serious: No
  Sender: FDA-Public Use
  Company Number: US-EXELIXIS-CABO-20035290

PATIENT
  Sex: Male

DRUGS (1)
  1. CABOMETYX [Suspect]
     Active Substance: CABOZANTINIB S-MALATE
     Indication: RENAL CANCER
     Dosage: 40 MG, QD
     Route: 048
     Dates: start: 20200702

REACTIONS (6)
  - Ocular discomfort [Recovering/Resolving]
  - Mood swings [Recovering/Resolving]
  - Stress [Recovering/Resolving]
  - Neck pain [Not Recovered/Not Resolved]
  - Panic attack [Recovering/Resolving]
  - Head discomfort [Recovering/Resolving]
